FAERS Safety Report 13490626 (Version 5)
Quarter: 2017Q2

REPORT INFORMATION
  Report Type: Report from Study
  Country: US (occurrence: US)
  Receive Date: 20170427
  Receipt Date: 20170620
  Transmission Date: 20170830
  Serious: Yes (Hospitalization, Other)
  Sender: FDA-Public Use
  Company Number: US-GILEAD-2017-0268218

PATIENT
  Age: 30 Year
  Sex: Female
  Weight: 72 kg

DRUGS (6)
  1. ADCIRCA [Concomitant]
     Active Substance: TADALAFIL
  2. XARELTO [Concomitant]
     Active Substance: RIVAROXABAN
  3. AMBRISENTAN [Suspect]
     Active Substance: AMBRISENTAN
     Dosage: 5 MG, UNK
     Route: 065
  4. AMBRISENTAN [Suspect]
     Active Substance: AMBRISENTAN
     Indication: PULMONARY ARTERIAL HYPERTENSION
     Dosage: 10 MG, QD
     Route: 065
     Dates: start: 20150122
  5. VELETRI [Concomitant]
     Active Substance: EPOPROSTENOL
  6. TADALAFIL [Concomitant]
     Active Substance: TADALAFIL

REACTIONS (5)
  - Syncope [Recovered/Resolved]
  - Loss of consciousness [Unknown]
  - Pulmonary arterial hypertension [Unknown]
  - Pain [Not Recovered/Not Resolved]
  - Catheterisation cardiac [Recovered/Resolved]

NARRATIVE: CASE EVENT DATE: 20170411
